FAERS Safety Report 20152251 (Version 1)
Quarter: 2021Q4

REPORT INFORMATION
  Report Type: Spontaneous
  Country: US (occurrence: US)
  Receive Date: 20211206
  Receipt Date: 20211206
  Transmission Date: 20220303
  Serious: No
  Sender: FDA-Public Use
  Company Number: US-KVK-TECH, INC-20210800100

PATIENT

DRUGS (2)
  1. DEXTROAMPHETAMINE SULFATE [Suspect]
     Active Substance: DEXTROAMPHETAMINE SULFATE
     Indication: Attention deficit hyperactivity disorder
     Dosage: UNK
     Route: 065
     Dates: start: 2021
  2. DEXTROAMPHETAMINE SULFATE [Suspect]
     Active Substance: DEXTROAMPHETAMINE SULFATE
     Indication: Depression

REACTIONS (7)
  - Headache [Unknown]
  - Nausea [Unknown]
  - Irritability [Unknown]
  - Listless [Unknown]
  - Fatigue [Unknown]
  - Drug ineffective [Unknown]
  - Product complaint [Unknown]
